FAERS Safety Report 19766532 (Version 1)
Quarter: 2021Q3

REPORT INFORMATION
  Report Type: Spontaneous
  Country: LU (occurrence: LU)
  Receive Date: 20210831
  Receipt Date: 20210831
  Transmission Date: 20211014
  Serious: Yes (Life-Threatening, Hospitalization)
  Sender: FDA-Public Use
  Company Number: LU-JNJFOC-20210856390

PATIENT
  Age: 36 Year
  Sex: Male
  Weight: 97 kg

DRUGS (2)
  1. REMICADE [Suspect]
     Active Substance: INFLIXIMAB
     Indication: CROHN^S DISEASE
     Dosage: SECOND ADMINISTRATION; IN TOTAL
     Route: 042
     Dates: start: 20210804, end: 20210804
  2. REMICADE [Suspect]
     Active Substance: INFLIXIMAB
     Dosage: FIRST ADMINISTRATION
     Route: 042
     Dates: start: 20210715, end: 20210715

REACTIONS (6)
  - Hypotension [Recovering/Resolving]
  - Sepsis [Recovering/Resolving]
  - Cold sweat [Recovering/Resolving]
  - Feeling abnormal [Recovering/Resolving]
  - Pyrexia [Recovering/Resolving]
  - Hypersensitivity [Recovering/Resolving]

NARRATIVE: CASE EVENT DATE: 20210804
